FAERS Safety Report 4426883-7 (Version None)
Quarter: 2004Q3

REPORT INFORMATION
  Report Type: 
  Country: None (occurrence: None)
  Receive Date: 20040811
  Receipt Date: 20040729
  Transmission Date: 20050211
  Serious: Yes (Hospitalization, Other)
  Sender: FDA-Public Use
  Company Number: 2004045169

PATIENT
  Age: 44 Year
  Sex: Male
  Weight: 72 kg

DRUGS (2)
  1. RELPAX [Suspect]
     Indication: MIGRAINE
     Dosage: 40 MG (40 MG, 1 IN 1 D), ORAL
     Route: 048
     Dates: start: 20040401, end: 20040404
  2. METOPROLOL TARTRATE [Suspect]
     Indication: MIGRAINE
     Dosage: 200 MG (200 MG, 1 IN 1 D), ORAL
     Route: 048
     Dates: start: 20040201

REACTIONS (10)
  - DRUG INTERACTION [None]
  - FALL [None]
  - HAEMATOMA [None]
  - LIMB INJURY [None]
  - LOWER LIMB FRACTURE [None]
  - MIGRAINE [None]
  - PAIN IN EXTREMITY [None]
  - PALLOR [None]
  - PERIPHERAL COLDNESS [None]
  - PERIPHERAL ISCHAEMIA [None]
